FAERS Safety Report 8988312 (Version 1)
Quarter: 2012Q4

REPORT INFORMATION
  Report Type: Spontaneous
  Country: US (occurrence: None)
  Receive Date: 20121220
  Receipt Date: 20121220
  Transmission Date: 20130627
  Serious: Yes (Death)
  Sender: FDA-Public Use
  Company Number: None

PATIENT
  Age: 61 Year
  Sex: Male

DRUGS (1)
  1. ABBOKINASE [Suspect]
     Indication: CORONARY ARTERY OCCLUSION
     Dates: start: 19961022, end: 19961022

REACTIONS (2)
  - Cardiac arrest [None]
  - Respiratory arrest [None]
